FAERS Safety Report 6674609-9 (Version None)
Quarter: 2010Q2

REPORT INFORMATION
  Report Type: 
  Country: None (occurrence: None)
  Receive Date: 20100409
  Receipt Date: 20100402
  Transmission Date: 20101027
  Serious: Yes (Hospitalization)
  Sender: FDA-Public Use
  Company Number: JP-ROCHE-693765

PATIENT
  Age: 54 Year
  Sex: Female

DRUGS (3)
  1. HERCEPTIN [Suspect]
     Indication: BREAST CANCER METASTATIC
     Route: 041
     Dates: start: 20050101, end: 20090101
  2. HERCEPTIN [Suspect]
     Route: 041
     Dates: start: 20090101
  3. ZOLEDRONIC ACID [Concomitant]
     Dosage: DRUG REPORTED: ZOLEDRONIC ACID HYDRATE
     Route: 041

REACTIONS (2)
  - FANCONI SYNDROME [None]
  - RENAL IMPAIRMENT [None]
